FAERS Safety Report 5506062-2 (Version None)
Quarter: 2007Q4

REPORT INFORMATION
  Report Type: 
  Country: None (occurrence: None)
  Receive Date: 20071105
  Receipt Date: 20071029
  Transmission Date: 20080405
  Serious: Yes (Hospitalization, Other)
  Sender: FDA-Public Use
  Company Number: PHEH2007US02782

PATIENT
  Age: 54 Year
  Sex: Female
  Weight: 53.514 kg

DRUGS (6)
  1. ESTRADERM [Suspect]
     Indication: HORMONE REPLACEMENT THERAPY
     Dosage: 0.1 MG TWICE WEEKLY
     Route: 062
     Dates: start: 19960101, end: 19970101
  2. VIVELLE [Suspect]
     Indication: HORMONE REPLACEMENT THERAPY
     Dosage: 0.05 MG, UNK
     Route: 062
     Dates: start: 19970101
  3. CYCRIN [Suspect]
     Indication: HORMONE REPLACEMENT THERAPY
     Dosage: 2.5 MG, UNK
     Route: 048
     Dates: start: 19960101, end: 19990101
  4. PROVERA [Suspect]
     Indication: HORMONE REPLACEMENT THERAPY
     Dosage: 2.5 MG, UNK
     Dates: start: 19960101, end: 19990101
  5. PREMPRO [Suspect]
     Indication: HORMONE REPLACEMENT THERAPY
     Dosage: 0.625MG/2.5 MG
     Dates: start: 19990101, end: 20010101
  6. ESTRADIOL [Suspect]
     Indication: HORMONE REPLACEMENT THERAPY
     Dates: start: 19980101, end: 19990101

REACTIONS (15)
  - BLOOD TRIGLYCERIDES INCREASED [None]
  - BREAST CANCER IN SITU [None]
  - BREAST MASS [None]
  - BREAST MICROCALCIFICATION [None]
  - BREAST OPERATION [None]
  - BURNING SENSATION [None]
  - CAROTID BRUIT [None]
  - COLONIC POLYP [None]
  - DEEP VEIN THROMBOSIS [None]
  - HAEMORRHOID OPERATION [None]
  - HOT FLUSH [None]
  - OEDEMA PERIPHERAL [None]
  - OSTEOPENIA [None]
  - PAIN IN EXTREMITY [None]
  - POLYPECTOMY [None]
